FAERS Safety Report 4427320-9 (Version None)
Quarter: 2004Q3

REPORT INFORMATION
  Report Type: 
  Country: None (occurrence: None)
  Receive Date: 20040813
  Receipt Date: 20040813
  Transmission Date: 20050211
  Serious: No
  Sender: FDA-Public Use
  Company Number: None

PATIENT
  Age: 39 Year
  Sex: Female
  Weight: 58.9676 kg

DRUGS (2)
  1. PAXIL [Suspect]
     Indication: DEPRESSION
     Dosage: 25 MG 1/DAY ORAL
     Route: 048
     Dates: start: 20030420, end: 20040812
  2. PROZAC [Suspect]

REACTIONS (20)
  - ARTHRALGIA [None]
  - BIPOLAR DISORDER [None]
  - CLUSTER HEADACHE [None]
  - CONFUSIONAL STATE [None]
  - DISSOCIATION [None]
  - DIZZINESS [None]
  - DRUG TOLERANCE [None]
  - EMOTIONAL DISORDER [None]
  - FAMILY STRESS [None]
  - FEAR [None]
  - FEELING ABNORMAL [None]
  - HEADACHE [None]
  - INSOMNIA [None]
  - LOSS OF EMPLOYMENT [None]
  - MIGRAINE [None]
  - MOOD SWINGS [None]
  - RELATIONSHIP BREAKDOWN [None]
  - SENSORY DISTURBANCE [None]
  - WEIGHT INCREASED [None]
  - WEIGHT LOSS POOR [None]
